FAERS Safety Report 23925213 (Version 2)
Quarter: 2024Q2

REPORT INFORMATION
  Report Type: Spontaneous
  Country: US (occurrence: US)
  Receive Date: 20240531
  Receipt Date: 20240605
  Transmission Date: 20240716
  Serious: No
  Sender: FDA-Public Use
  Company Number: US-TEVA-VS-3200324

PATIENT
  Age: 40 Year
  Sex: Female

DRUGS (1)
  1. PIMECROLIMUS [Suspect]
     Active Substance: PIMECROLIMUS
     Indication: Product used for unknown indication
     Dosage: 1% EXTERNAL USE
     Route: 065

REACTIONS (4)
  - Thinking abnormal [Unknown]
  - Pruritus [Unknown]
  - Thermal burn [Unknown]
  - Accidental exposure to product [Unknown]
